FAERS Safety Report 7473927-4 (Version None)
Quarter: 2011Q2

REPORT INFORMATION
  Report Type: 
  Country: None (occurrence: None)
  Receive Date: 20110511
  Receipt Date: 20110505
  Transmission Date: 20111010
  Serious: No
  Sender: FDA-Public Use
  Company Number: US-ABBOTT-11P-163-0723590-00

PATIENT
  Sex: Male

DRUGS (3)
  1. REYATAZ [Concomitant]
     Indication: HIV INFECTION
  2. NORVIR [Suspect]
     Dosage: CAPSULES
  3. NORVIR [Suspect]
     Indication: DRUG THERAPY
     Dates: start: 20110428, end: 20110504

REACTIONS (3)
  - DIZZINESS [None]
  - ASTHENIA [None]
  - SYNCOPE [None]
